FAERS Safety Report 7833469-0 (Version None)
Quarter: 2011Q4

REPORT INFORMATION
  Report Type: 
  Country: None (occurrence: None)
  Receive Date: 20111024
  Receipt Date: 20111019
  Transmission Date: 20120403
  Serious: Yes (Hospitalization)
  Sender: FDA-Public Use
  Company Number: DE-ASTELLAS-2011EU004453

PATIENT
  Age: 86 Year
  Sex: Female
  Weight: 97 kg

DRUGS (5)
  1. CONCOR [Concomitant]
     Indication: CORONARY ARTERY DISEASE
     Dosage: 5 MG, UID/QD
     Route: 048
     Dates: start: 20000101
  2. VESICARE [Suspect]
     Indication: INCONTINENCE
     Dosage: 5 MG, UID/QD
     Route: 048
     Dates: start: 20110607, end: 20110608
  3. ACETAMINOPHEN [Concomitant]
     Dosage: 1 DF, BID
     Route: 048
     Dates: start: 20110519, end: 20110608
  4. RAMIPRIL [Concomitant]
     Indication: CORONARY ARTERY DISEASE
     Dosage: 5 MG, UID/QD
     Route: 048
     Dates: start: 19970101
  5. RAMIPRIL [Concomitant]
     Indication: HYPERTENSION

REACTIONS (2)
  - DYSPNOEA [None]
  - LARYNGEAL OEDEMA [None]
